APPROVED DRUG PRODUCT: MACITENTAN
Active Ingredient: MACITENTAN
Strength: 10MG
Dosage Form/Route: TABLET;ORAL
Application: A211224 | Product #001
Applicant: ZYDUS LIFESCIENCES GLOBAL FZE
Approved: Apr 6, 2021 | RLD: No | RS: No | Type: DISCN